FAERS Safety Report 17318612 (Version 2)
Quarter: 2020Q1

REPORT INFORMATION
  Report Type: Report from Study
  Country: CA (occurrence: CA)
  Receive Date: 20200124
  Receipt Date: 20200204
  Transmission Date: 20200409
  Serious: Yes (Other)
  Sender: FDA-Public Use
  Company Number: CA-NALPROPION PHARMACEUTICALS INC.-2020-009449

PATIENT

DRUGS (9)
  1. CONTRAVE [Suspect]
     Active Substance: BUPROPION HYDROCHLORIDE\NALTREXONE HYDROCHLORIDE
     Dosage: 90MG/8MG, TWO TABLETS IN THE MORNING (2 TABS AM) AND ONE TABLET IN THE EVENING (1 TAB PM)
     Route: 048
     Dates: start: 20191230, end: 20200105
  2. CANDESARTAN. [Concomitant]
     Active Substance: CANDESARTAN
     Indication: HYPERTENSION
     Dosage: MORE THAN A YEAR, SINCE 2018
     Route: 048
     Dates: start: 2018
  3. CONTRAVE [Suspect]
     Active Substance: BUPROPION HYDROCHLORIDE\NALTREXONE HYDROCHLORIDE
     Indication: WEIGHT CONTROL
     Dosage: 90MG/8MG (START DATE: APPROXIMATELY 16/DEC/2019)
     Route: 048
     Dates: start: 201912, end: 20191222
  4. CONTRAVE [Suspect]
     Active Substance: BUPROPION HYDROCHLORIDE\NALTREXONE HYDROCHLORIDE
     Dosage: 90MG/8MG
     Route: 048
     Dates: start: 20191223, end: 20191229
  5. CONTRAVE [Suspect]
     Active Substance: BUPROPION HYDROCHLORIDE\NALTREXONE HYDROCHLORIDE
     Dosage: 90MG/8MG
     Route: 048
     Dates: start: 20200106, end: 20200107
  6. NIFEDIPINE. [Concomitant]
     Active Substance: NIFEDIPINE
     Indication: HYPERTENSION
     Dosage: MORE THAN A YEAR, SINCE 2018
     Route: 048
     Dates: start: 2018
  7. FESOTERODINE [Concomitant]
     Active Substance: FESOTERODINE
     Indication: BLADDER DISORDER
     Dosage: MORE THAN A YEAR, SINCE 2018
     Route: 048
     Dates: start: 2018
  8. NADOLOL. [Concomitant]
     Active Substance: NADOLOL
     Indication: HYPERTENSION
     Dosage: MORE THAN A YEAR, SINCE 2018
     Route: 048
     Dates: start: 2018
  9. CRESTOR [Concomitant]
     Active Substance: ROSUVASTATIN CALCIUM
     Indication: BLOOD CHOLESTEROL ABNORMAL
     Dosage: MORE THAN A YEAR, SINCE 2018
     Route: 048
     Dates: start: 2018

REACTIONS (4)
  - Middle insomnia [Unknown]
  - Blood pressure increased [Recovered/Resolved]
  - Sexual dysfunction [Not Recovered/Not Resolved]
  - Headache [Unknown]

NARRATIVE: CASE EVENT DATE: 201912
